FAERS Safety Report 11055838 (Version 2)
Quarter: 2015Q2

REPORT INFORMATION
  Report Type: Report from Study
  Country: DE (occurrence: DE)
  Receive Date: 20150422
  Receipt Date: 20150424
  Transmission Date: 20150821
  Serious: Yes (Hospitalization, Other)
  Sender: FDA-Public Use
  Company Number: DE-JNJFOC-20140306252

PATIENT
  Age: 41 Year
  Sex: Male
  Weight: 80 kg

DRUGS (6)
  1. CICLOSPORIN [Suspect]
     Active Substance: CYCLOSPORINE
     Indication: PRODUCT USED FOR UNKNOWN INDICATION
     Route: 065
  2. REMICADE [Suspect]
     Active Substance: INFLIXIMAB
     Indication: PSORIASIS
     Dosage: 400 MG
     Route: 042
     Dates: start: 20130910, end: 201406
  3. ENBREL [Suspect]
     Active Substance: ETANERCEPT
     Indication: PRODUCT USED FOR UNKNOWN INDICATION
     Route: 065
  4. METHOTREXATE [Suspect]
     Active Substance: METHOTREXATE
     Indication: PRODUCT USED FOR UNKNOWN INDICATION
     Dosage: 15 MG AND 20 MG ALTERNATELY
     Route: 065
  5. STELARA [Suspect]
     Active Substance: USTEKINUMAB
     Indication: PRODUCT USED FOR UNKNOWN INDICATION
     Route: 058
  6. OPIPRAMOL [Concomitant]
     Active Substance: OPIPRAMOL
     Dosage: 100, HALF IN THE MORNING AND HALF AT THE EVENING
     Route: 065

REACTIONS (5)
  - Deep vein thrombosis [Recovered/Resolved]
  - Papilloma excision [Unknown]
  - Pulmonary embolism [Recovered/Resolved]
  - Psoriasis [Recovered/Resolved]
  - Immunodeficiency [Unknown]

NARRATIVE: CASE EVENT DATE: 20140219
